FAERS Safety Report 21411569 (Version 2)
Quarter: 2022Q4

REPORT INFORMATION
  Report Type: Spontaneous
  Country: FR (occurrence: FR)
  Receive Date: 20221005
  Receipt Date: 20221013
  Transmission Date: 20230113
  Serious: Yes (Death, Hospitalization, Other)
  Sender: FDA-Public Use
  Company Number: None

PATIENT
  Age: 58 Year
  Sex: Female
  Weight: 58 kg

DRUGS (7)
  1. DOXORUBICIN HYDROCHLORIDE [Suspect]
     Active Substance: DOXORUBICIN HYDROCHLORIDE
     Indication: Chondrosarcoma
     Dosage: UNK
     Route: 042
     Dates: start: 202107, end: 202111
  2. PREGABALIN [Suspect]
     Active Substance: PREGABALIN
     Indication: Neuralgia
     Dosage: 225 MG, 1X/DAY
     Route: 048
     Dates: end: 20220330
  3. PAZOPANIB [Suspect]
     Active Substance: PAZOPANIB
     Indication: Sarcoma
     Dosage: 800 MG, 2X/DAY
     Route: 048
     Dates: start: 202203, end: 20220330
  4. PREDNISOLONE ACETATE [Suspect]
     Active Substance: PREDNISOLONE ACETATE
     Dosage: 60 MG, DAILY
     Route: 048
     Dates: start: 20220328, end: 20220330
  5. SKENAN [Concomitant]
     Active Substance: MORPHINE SULFATE
     Indication: Pain
     Dosage: 20 MG, DAILY
     Route: 048
  6. CISPLATIN [Concomitant]
     Active Substance: CISPLATIN
     Indication: Sarcoma
     Dosage: UNK
     Route: 042
     Dates: start: 202107, end: 202107
  7. PROTHIADEN [Concomitant]
     Active Substance: DOTHIEPIN HYDROCHLORIDE
     Dosage: 75 MG, DAILY
     Route: 048
     Dates: end: 20220330

REACTIONS (2)
  - Status epilepticus [Fatal]
  - Cardiac failure [Recovering/Resolving]

NARRATIVE: CASE EVENT DATE: 20220328
